FAERS Safety Report 26086705 (Version 1)
Quarter: 2025Q4

REPORT INFORMATION
  Report Type: Spontaneous
  Country: US (occurrence: US)
  Receive Date: 20251125
  Receipt Date: 20251125
  Transmission Date: 20260118
  Serious: No
  Sender: CIPLA
  Company Number: US-CIPLA LTD.-2025US14586

PATIENT

DRUGS (4)
  1. ALBUTEROL [Suspect]
     Active Substance: ALBUTEROL
     Indication: Asthma
     Dosage: 2-4 PUFFS EVERY 4 HOURS (REGULAR USER)
     Route: 065
     Dates: start: 2014
  2. ALBUTEROL [Suspect]
     Active Substance: ALBUTEROL
     Dosage: 2-4 PUFFS EVERY 4 HOURS
     Route: 065
     Dates: start: 202507, end: 202507
  3. ALBUTEROL [Suspect]
     Active Substance: ALBUTEROL
     Dosage: 2-4 PUFFS EVERY 4 HOURS
     Route: 065
     Dates: start: 20251010
  4. ZYRTEC [Concomitant]
     Active Substance: CETIRIZINE HYDROCHLORIDE
     Indication: Hypersensitivity
     Dosage: 1 DOSAGE FORM, QD
     Route: 065
     Dates: start: 2014

REACTIONS (3)
  - Product dose omission issue [Unknown]
  - Device delivery system issue [Unknown]
  - Drug dose omission by device [Unknown]

NARRATIVE: CASE EVENT DATE: 20250101
